FAERS Safety Report 10382461 (Version 2)
Quarter: 2014Q3

REPORT INFORMATION
  Report Type: Spontaneous
  Country: GB (occurrence: GB)
  Receive Date: 20140813
  Receipt Date: 20140813
  Transmission Date: 20150326
  Serious: Yes (Death, Other)
  Sender: FDA-Public Use
  Company Number: GB-TEVA-473328ISR

PATIENT
  Age: 61 Year
  Sex: Male

DRUGS (12)
  1. CITALOPRAM [Interacting]
     Active Substance: CITALOPRAM HYDROBROMIDE
     Indication: DEPRESSION
     Dosage: 60 MG DAILY
     Route: 048
  2. SIMVASTATIN. [Concomitant]
     Active Substance: SIMVASTATIN
     Indication: PAIN
     Dosage: 40 MILLIGRAM DAILY;
     Route: 048
  3. VITAMIN B COMPOUND STRONG [Concomitant]
     Dosage: 1 DOSAGE FORMS DAILY; 1 TABLET DAILY
     Route: 048
  4. AMITRIPTYLINE [Interacting]
     Active Substance: AMITRIPTYLINE
     Indication: ANALGESIC THERAPY
     Dosage: 50 MILLIGRAM DAILY;
     Route: 048
  5. CODEINE PHOSPHATE [Interacting]
     Active Substance: CODEINE PHOSPHATE
     Dates: end: 20120809
  6. QUININE SULPHATE [Interacting]
     Active Substance: QUININE SULFATE
     Indication: ANALGESIC THERAPY
     Dosage: 200 MILLIGRAM DAILY;
     Route: 048
  7. DIAZEPAM. [Concomitant]
     Active Substance: DIAZEPAM
     Dosage: 40 MILLIGRAM DAILY;
     Route: 048
  8. GABAPENTIN. [Concomitant]
     Active Substance: GABAPENTIN
     Dosage: 2400 MILLIGRAM DAILY;
     Route: 048
  9. SILDENAFIL CITRATE. [Concomitant]
     Active Substance: SILDENAFIL CITRATE
  10. CITALOPRAM [Suspect]
     Active Substance: CITALOPRAM HYDROBROMIDE
     Indication: PANIC DISORDER
     Dosage: 60 MILLIGRAM DAILY;
     Dates: start: 2002
  11. CODEINE PHOSPHATE [Interacting]
     Active Substance: CODEINE PHOSPHATE
     Indication: PAIN
     Route: 048
     Dates: start: 20120810, end: 20120810
  12. PARACETAMOL [Concomitant]
     Active Substance: ACETAMINOPHEN
     Dosage: 4000 MILLIGRAM DAILY;
     Route: 048

REACTIONS (5)
  - Syncope [Unknown]
  - Drug interaction [Fatal]
  - Overdose [Unknown]
  - Prescribed overdose [Unknown]
  - Cardiac arrest [Fatal]

NARRATIVE: CASE EVENT DATE: 20120810
